FAERS Safety Report 8963225 (Version 3)
Quarter: 2013Q2

REPORT INFORMATION
  Report Type: Spontaneous
  Country: DE (occurrence: DE)
  Receive Date: 20121214
  Receipt Date: 20130425
  Transmission Date: 20140414
  Serious: Yes (Hospitalization, Other)
  Sender: FDA-Public Use
  Company Number: DE-MPIJNJ-2012-08813

PATIENT
  Sex: 0

DRUGS (4)
  1. VELCADE [Suspect]
     Indication: PLASMA CELL MYELOMA
     Dosage: 1.3 MG/M2, CYCLIC
     Route: 042
     Dates: start: 20120927
  2. VELCADE [Suspect]
     Dosage: 2.6 MG/M2, UNK
     Route: 042
     Dates: end: 20121101
  3. INEGY [Suspect]
     Indication: METABOLIC DISORDER
     Dosage: UNK
     Route: 048
     Dates: start: 2010
  4. DEXAMETHASONE [Concomitant]
     Indication: PLASMA CELL MYELOMA
     Dosage: 20 MG, UNK
     Route: 048
     Dates: start: 20120927, end: 20121102

REACTIONS (1)
  - Rhabdomyolysis [Recovered/Resolved]
